FAERS Safety Report 13671558 (Version 1)
Quarter: 2017Q2

REPORT INFORMATION
  Report Type: Spontaneous
  Country: US (occurrence: US)
  Receive Date: 20170620
  Receipt Date: 20170620
  Transmission Date: 20170830
  Serious: Yes (Disabling, Other)
  Sender: FDA-Public Use
  Company Number: US-ROCHE-643459

PATIENT
  Age: 49 Year
  Sex: Female
  Weight: 137.9 kg

DRUGS (3)
  1. XELODA [Suspect]
     Active Substance: CAPECITABINE
     Indication: BREAST CANCER
     Dosage: DOSAGE: 1500 MG IN AM AND 2000 MG IN PM
     Route: 048
     Dates: start: 20090609, end: 20090617
  2. TAXOTERE [Suspect]
     Active Substance: DOCETAXEL
     Indication: BREAST CANCER
     Dosage: DOSE: 75 MG/M2
     Route: 042
  3. DECADRON [Concomitant]
     Active Substance: DEXAMETHASONE
     Dosage: DOSE: 8 MG BID FOR 3 DAYS AND 8 MG DAILY FOR 2 DAYS
     Route: 042
     Dates: start: 20090608, end: 20090612

REACTIONS (3)
  - Bone pain [Recovering/Resolving]
  - Tongue discolouration [Unknown]
  - Anaphylactic reaction [Unknown]

NARRATIVE: CASE EVENT DATE: 20090610
